FAERS Safety Report 6978667-3 (Version None)
Quarter: 2010Q3

REPORT INFORMATION
  Report Type: 
  Country: None (occurrence: None)
  Receive Date: 20100913
  Receipt Date: 20100827
  Transmission Date: 20110219
  Serious: Yes (Hospitalization)
  Sender: FDA-Public Use
  Company Number: A0861829A

PATIENT
  Sex: Male
  Weight: 156.8 kg

DRUGS (9)
  1. AVANDIA [Suspect]
     Indication: DIABETES MELLITUS
     Dosage: 89MG PER DAY
     Route: 048
     Dates: start: 20050809, end: 20080312
  2. GLIPIZIDE [Concomitant]
  3. LISINOPRIL [Concomitant]
  4. HYDROCHLOROTHIAZIDE [Concomitant]
  5. NEURONTIN [Concomitant]
  6. OXYBUTYNIN [Concomitant]
  7. OMEPRAZOLE [Concomitant]
  8. SIMVASTATIN [Concomitant]
  9. TRAZODONE HCL [Concomitant]

REACTIONS (1)
  - MYOCARDIAL INFARCTION [None]
